FAERS Safety Report 9566294 (Version 1)
Quarter: 2013Q3

REPORT INFORMATION
  Report Type: Spontaneous
  Country: BE (occurrence: BE)
  Receive Date: 20130930
  Receipt Date: 20130930
  Transmission Date: 20140515
  Serious: Yes (Hospitalization)
  Sender: FDA-Public Use
  Company Number: BE-B.I. PHARMACEUTICALS,INC./RIDGEFIELD-2013-BI-30253BL

PATIENT
  Age: 2 Year
  Sex: 0

DRUGS (1)
  1. PRADAXA [Suspect]
     Route: 048

REACTIONS (1)
  - Accidental exposure to product by child [Recovered/Resolved]
